FAERS Safety Report 15401335 (Version 1)
Quarter: 2018Q3

REPORT INFORMATION
  Report Type: Spontaneous
  Country: US (occurrence: US)
  Receive Date: 20180914
  Receipt Date: 20180914
  Transmission Date: 20181010
  Serious: Yes (Other)
  Sender: FDA-Public Use
  Company Number: None

PATIENT
  Age: 20 Year
  Sex: Female
  Weight: 11.57 kg

DRUGS (1)
  1. SELSUN BLUE [Suspect]
     Active Substance: SELENIUM SULFIDE
     Indication: TINEA VERSICOLOUR
     Dosage: ?          OTHER FREQUENCY:NIGHTLY;?
     Route: 061
     Dates: start: 20180830, end: 20180901

REACTIONS (1)
  - Product use in unapproved indication [None]

NARRATIVE: CASE EVENT DATE: 20180902
